FAERS Safety Report 10234173 (Version 1)
Quarter: 2014Q2

REPORT INFORMATION
  Report Type: Report from Study
  Country: BR (occurrence: BR)
  Receive Date: 20140612
  Receipt Date: 20140612
  Transmission Date: 20141212
  Serious: Yes (Hospitalization, Other)
  Sender: FDA-Public Use
  Company Number: BR-GLAXOSMITHKLINE-B1003192A

PATIENT
  Age: 80 Year
  Sex: Female
  Weight: 57 kg

DRUGS (3)
  1. RYTMONORM [Suspect]
     Indication: ARRHYTHMIA
     Dosage: 300MG PER DAY
     Route: 048
  2. ACETYLSALICYLIC ACID [Concomitant]
     Indication: ARRHYTHMIA
     Dosage: 1TAB PER DAY
     Route: 048
  3. ALENDRONATE SODIUM [Concomitant]
     Indication: OSTEOPOROSIS
     Dosage: 1TAB WEEKLY
     Route: 048

REACTIONS (7)
  - Investigation [Unknown]
  - Surgery [Unknown]
  - Foot fracture [Recovering/Resolving]
  - Ankle fracture [Recovering/Resolving]
  - Pain in extremity [Unknown]
  - Emotional distress [Unknown]
  - Gait disturbance [Not Recovered/Not Resolved]
